FAERS Safety Report 6070303-6 (Version None)
Quarter: 2009Q1

REPORT INFORMATION
  Report Type: 
  Country: None (occurrence: None)
  Receive Date: 20090209
  Receipt Date: 20090128
  Transmission Date: 20090719
  Serious: Yes (Death)
  Sender: FDA-Public Use
  Company Number: DE-ELI_LILLY_AND_COMPANY-DE200902001207

PATIENT
  Sex: Female

DRUGS (4)
  1. BERLINSULIN 30% REGULAR, 70% NPH [Suspect]
     Indication: DIABETES MELLITUS
     Dosage: 6 IU, EACH MORNING
     Route: 058
     Dates: start: 20080529
  2. BERLINSULIN 30% REGULAR, 70% NPH [Suspect]
     Dosage: 6 IU, EACH EVENING
     Dates: start: 20090529
  3. RAMIPRIL [Concomitant]
     Dosage: 10 MG, DAILY (1/D)
     Dates: start: 20000601
  4. MELPERON [Concomitant]
     Dosage: 10 ML, DAILY (1/D)
     Dates: start: 20041001

REACTIONS (2)
  - CACHEXIA [None]
  - DEHYDRATION [None]
